FAERS Safety Report 6332356-7 (Version None)
Quarter: 2009Q3

REPORT INFORMATION
  Report Type: 
  Country: None (occurrence: None)
  Receive Date: 20090827
  Receipt Date: 20090827
  Transmission Date: 20100115
  Serious: Yes (Other)
  Sender: FDA-Public Use
  Company Number: None

PATIENT
  Age: 25 Year
  Sex: Female

DRUGS (1)
  1. LAMOTRIGINE 150 MG TARO [Suspect]
     Indication: CONVULSION
     Dosage: 1/2 TAB IN AM, 1 TAB IN PM PO
     Route: 048
     Dates: start: 20090615, end: 20090707

REACTIONS (2)
  - CONVULSION [None]
  - PRODUCT SUBSTITUTION ISSUE [None]
